FAERS Safety Report 9846883 (Version 3)
Quarter: 2014Q1

REPORT INFORMATION
  Report Type: Spontaneous
  Country: IT (occurrence: IT)
  Receive Date: 20140127
  Receipt Date: 20140310
  Transmission Date: 20141002
  Serious: Yes (Hospitalization)
  Sender: FDA-Public Use
  Company Number: IT-PFIZER INC-2014022091

PATIENT
  Age: 49 Year
  Sex: Female

DRUGS (7)
  1. XALKORI [Suspect]
     Indication: LUNG ADENOCARCINOMA METASTATIC
     Dosage: 250 MG, 2X/DAY
     Route: 048
     Dates: start: 20131122, end: 20140102
  2. KEPPRA [Concomitant]
  3. TOPAMAX [Concomitant]
     Dosage: UNK
  4. RANIDIL [Concomitant]
  5. DELTACORTENE [Concomitant]
  6. LASIX [Concomitant]
  7. DALMADORM [Concomitant]

REACTIONS (2)
  - Pneumonitis [Recovered/Resolved with Sequelae]
  - Febrile neutropenia [Recovered/Resolved with Sequelae]
